FAERS Safety Report 17097124 (Version 1)
Quarter: 2019Q4

REPORT INFORMATION
  Report Type: Spontaneous
  Country: US (occurrence: US)
  Receive Date: 20191202
  Receipt Date: 20191202
  Transmission Date: 20200122
  Serious: No
  Sender: FDA-Public Use
  Company Number: US-GLAXOSMITHKLINE-US2019AMR212560

PATIENT
  Sex: Female

DRUGS (2)
  1. MEPOLIZUMAB POWDER FOR INJECTION [Suspect]
     Active Substance: MEPOLIZUMAB
     Indication: PRODUCT USED FOR UNKNOWN INDICATION
     Dosage: 100 MG
  2. MEPOLIZUMAB POWDER FOR INJECTION [Suspect]
     Active Substance: MEPOLIZUMAB
     Dosage: 300 MG

REACTIONS (2)
  - Exposure during pregnancy [Unknown]
  - Live birth [Unknown]
